FAERS Safety Report 10512824 (Version 1)
Quarter: 2014Q4

REPORT INFORMATION
  Report Type: Spontaneous
  Country: ID (occurrence: ID)
  Receive Date: 20141013
  Receipt Date: 20141013
  Transmission Date: 20150528
  Serious: Yes (Hospitalization)
  Sender: FDA-Public Use
  Company Number: PHHY2014ID130621

PATIENT
  Age: 25 Year
  Sex: Female

DRUGS (4)
  1. RIFAMPICIN [Suspect]
     Active Substance: RIFAMPIN
     Indication: PULMONARY TUBERCULOSIS
     Dosage: UNK UKN, UNK
     Route: 065
     Dates: start: 201201
  2. PYRAZINAMIDE. [Concomitant]
     Active Substance: PYRAZINAMIDE
     Indication: PULMONARY TUBERCULOSIS
     Dosage: UNK UKN, UNK
     Route: 065
     Dates: start: 201201
  3. ISONIAZID. [Suspect]
     Active Substance: ISONIAZID
     Indication: PULMONARY TUBERCULOSIS
     Dosage: UNK UKN, UNK
     Route: 065
     Dates: start: 201201
  4. ETHAMBUTOL [Concomitant]
     Active Substance: ETHAMBUTOL HYDROCHLORIDE
     Indication: PULMONARY TUBERCULOSIS
     Dosage: UNK UKN, UNK
     Route: 065
     Dates: start: 201201

REACTIONS (10)
  - Anaphylactic shock [Recovering/Resolving]
  - Atrioventricular block second degree [Unknown]
  - Pruritus generalised [Unknown]
  - Palpitations [Unknown]
  - Pyrexia [Unknown]
  - Anaphylactic reaction [Recovering/Resolving]
  - Dyspnoea [Unknown]
  - Eyelid oedema [Unknown]
  - Lip swelling [Unknown]
  - Blood pressure decreased [Unknown]
